FAERS Safety Report 24330052 (Version 3)
Quarter: 2025Q3

REPORT INFORMATION
  Report Type: Report from Study
  Country: US (occurrence: US)
  Receive Date: 20240917
  Receipt Date: 20250809
  Transmission Date: 20251021
  Serious: Yes (Hospitalization, Other)
  Sender: ALEXION PHARMACEUTICALS
  Company Number: 2024A210839

PATIENT
  Sex: Female

DRUGS (2)
  1. FASENRA [Suspect]
     Active Substance: BENRALIZUMAB
     Indication: Chronic obstructive pulmonary disease
  2. FASENRA [Suspect]
     Active Substance: BENRALIZUMAB
     Indication: Pulmonary fibrosis

REACTIONS (4)
  - Atrial fibrillation [Unknown]
  - Pulmonary oedema [Unknown]
  - Hydronephrosis [Unknown]
  - Cardiac disorder [Unknown]
